FAERS Safety Report 11539742 (Version 2)
Quarter: 2015Q4

REPORT INFORMATION
  Report Type: Spontaneous
  Country: US (occurrence: US)
  Receive Date: 20150923
  Receipt Date: 20151012
  Transmission Date: 20160304
  Serious: Yes (Death)
  Sender: FDA-Public Use
  Company Number: US-JAZZ-2015-US-014429

PATIENT
  Age: 47 Year
  Sex: Male

DRUGS (9)
  1. CLONIDINE. [Suspect]
     Active Substance: CLONIDINE
     Indication: PAIN
     Dosage: UNK ?G, QH
     Route: 037
     Dates: end: 20150522
  2. NEURONTIN [Concomitant]
     Active Substance: GABAPENTIN
  3. PRIALT [Suspect]
     Active Substance: ZICONOTIDE ACETATE
     Indication: PAIN
     Dosage: UNK ?G, QH
     Route: 037
     Dates: end: 20150512
  4. MORPHINE SULFATE. [Suspect]
     Active Substance: MORPHINE SULFATE
     Dosage: 0.042 MG, QH
     Route: 037
     Dates: start: 20150522
  5. MORPHINE SULFATE. [Concomitant]
     Active Substance: MORPHINE SULFATE
  6. MORPHINE SULFATE. [Suspect]
     Active Substance: MORPHINE SULFATE
     Indication: PAIN
     Dosage: UNK MG, QH
     Route: 037
     Dates: end: 20150522
  7. ADVIL [Concomitant]
     Active Substance: IBUPROFEN
  8. PRIALT [Suspect]
     Active Substance: ZICONOTIDE ACETATE
     Dosage: 0.021 ?G, QH
     Route: 037
     Dates: start: 20150512, end: 20150512
  9. CLONIDINE. [Suspect]
     Active Substance: CLONIDINE
     Dosage: 5.51 ?G, QH
     Route: 037
     Dates: start: 20150522

REACTIONS (2)
  - Sepsis [Fatal]
  - Cardiac failure [Fatal]

NARRATIVE: CASE EVENT DATE: 20150823
